FAERS Safety Report 8237700-1 (Version None)
Quarter: 2012Q1

REPORT INFORMATION
  Report Type: 
  Country: None (occurrence: None)
  Receive Date: 20120323
  Receipt Date: 20120316
  Transmission Date: 20120608
  Serious: Yes (Other)
  Sender: FDA-Public Use
  Company Number: DSA_48852_2012

PATIENT
  Sex: Male

DRUGS (1)
  1. XENAZINE [Suspect]
     Indication: TARDIVE DYSKINESIA
     Dosage: (25 MG TID ORAL)
     Route: 048
     Dates: start: 20120104

REACTIONS (2)
  - NEURALGIA [None]
  - MUSCLE SPASMS [None]
